FAERS Safety Report 9500418 (Version 1)
Quarter: 2013Q3

REPORT INFORMATION
  Report Type: Spontaneous
  Country: US (occurrence: None)
  Receive Date: 20130903
  Receipt Date: 20130903
  Transmission Date: 20140515
  Serious: Yes (Hospitalization)
  Sender: FDA-Public Use
  Company Number: 89671

PATIENT
  Sex: Female

DRUGS (1)
  1. PACLITAXEL [Suspect]

REACTIONS (2)
  - Hypoxia [None]
  - Lung disorder [None]
